FAERS Safety Report 12116639 (Version 1)
Quarter: 2016Q1

REPORT INFORMATION
  Report Type: Report from Study
  Country: BR (occurrence: BR)
  Receive Date: 20160225
  Receipt Date: 20160225
  Transmission Date: 20160526
  Serious: Yes (Other)
  Sender: FDA-Public Use
  Company Number: BR-REGENERON PHARMACEUTICALS, INC.-2016-12632

PATIENT

DRUGS (10)
  1. SELENIUM [Concomitant]
     Active Substance: SELENIUM
     Indication: PROSTATIC DISORDER
     Dosage: 1 DF, BID
     Route: 048
  2. BUPROPION. [Concomitant]
     Active Substance: BUPROPION
     Indication: LOSS OF LIBIDO
     Dosage: 2 DF, QD
  3. EYLEA [Suspect]
     Active Substance: AFLIBERCEPT
     Indication: AGE-RELATED MACULAR DEGENERATION
     Dosage: LEFT EYE
     Route: 031
     Dates: start: 20140708, end: 20140708
  4. EYLEA [Suspect]
     Active Substance: AFLIBERCEPT
     Dosage: LEFT EYE
     Route: 031
     Dates: start: 20160211, end: 20160211
  5. EYLEA [Suspect]
     Active Substance: AFLIBERCEPT
     Dosage: LEFT EYE
     Route: 031
     Dates: start: 20140818, end: 20140818
  6. EYLEA [Suspect]
     Active Substance: AFLIBERCEPT
     Dosage: LEFT EYE
     Route: 031
     Dates: start: 201512, end: 201512
  7. TADALAFIL [Concomitant]
     Active Substance: TADALAFIL
     Indication: LOSS OF LIBIDO
     Dosage: 2 DF, QD
  8. YOHIMBINE [Concomitant]
     Active Substance: YOHIMBINE
     Indication: LOSS OF LIBIDO
     Dosage: 2 MG, UNK
  9. FINASTERIDE. [Concomitant]
     Active Substance: FINASTERIDE
     Indication: PROSTATIC DISORDER
     Dosage: 1 DF, BID
     Route: 048
  10. LYCOPENE [Concomitant]
     Active Substance: LYCOPENE
     Indication: PROSTATIC DISORDER
     Dosage: 1 DF, BID
     Route: 048

REACTIONS (9)
  - Injection site pain [Recovered/Resolved]
  - Product use issue [Recovered/Resolved]
  - Intra-ocular injection [Unknown]
  - Visual impairment [Recovered/Resolved with Sequelae]
  - Visual impairment [Recovered/Resolved]
  - Injection site pain [Unknown]
  - Visual impairment [Recovered/Resolved]
  - Injection site pain [Recovered/Resolved]
  - Injection site pain [Recovered/Resolved]

NARRATIVE: CASE EVENT DATE: 20140708
